FAERS Safety Report 5164222-7 (Version None)
Quarter: 2006Q4

REPORT INFORMATION
  Report Type: 
  Country: None (occurrence: None)
  Receive Date: 20060918
  Receipt Date: 20050916
  Transmission Date: 20070319
  Serious: Yes (Disabling)
  Sender: FDA-Public Use
  Company Number: PHEH2005US10364

PATIENT
  Sex: Female

DRUGS (2)
  1. FEMARA [Suspect]
     Indication: BREAST CANCER
     Dosage: 2.5 MG, QD, ORAL
     Route: 048
     Dates: start: 20040801, end: 20050909
  2. FUROSEMIDE [Concomitant]

REACTIONS (6)
  - ALOPECIA [None]
  - ARTHRALGIA [None]
  - CONSTIPATION [None]
  - DRUG INTERACTION [None]
  - JOINT STIFFNESS [None]
  - MYALGIA [None]
